FAERS Safety Report 25529122 (Version 1)
Quarter: 2025Q3

REPORT INFORMATION
  Report Type: Spontaneous
  Country: US (occurrence: None)
  Receive Date: 20250707
  Receipt Date: 20250707
  Transmission Date: 20251020
  Serious: Yes (Hospitalization)
  Sender: FDA-CTU
  Company Number: None

PATIENT
  Age: 71 Year
  Sex: Female
  Weight: 56.25 kg

DRUGS (16)
  1. ARGININE [Suspect]
     Active Substance: ARGININE
     Indication: Metastases to central nervous system
     Dosage: FREQUENCY : DAILY;?
     Route: 048
     Dates: start: 20250528, end: 20250610
  2. ARGININE [Suspect]
     Active Substance: ARGININE
     Indication: Malignant neoplasm of unknown primary site
  3. MEMANTINE [Concomitant]
     Active Substance: MEMANTINE
     Dates: start: 20250515
  4. DEXAMETHASONE [Concomitant]
     Active Substance: DEXAMETHASONE
     Dates: start: 20250508, end: 20250610
  5. TRAMADOL [Concomitant]
     Active Substance: TRAMADOL
     Dates: start: 20250503
  6. CETIRIZINE HCL [Concomitant]
     Active Substance: CETIRIZINE HYDROCHLORIDE
     Dates: start: 20200514
  7. ERGOCALCIFEROL [Concomitant]
     Active Substance: ERGOCALCIFEROL
     Dates: start: 20250315
  8. MELOXICAM [Concomitant]
     Active Substance: MELOXICAM
     Dates: start: 20250107, end: 20250430
  9. INSULIN GLARGINE-YFGN [Concomitant]
     Active Substance: INSULIN GLARGINE-YFGN
     Dates: start: 20250614
  10. INSULIN LISPRO [Concomitant]
     Active Substance: INSULIN LISPRO
     Dates: start: 20250614
  11. SITAGLIPTIN [Concomitant]
     Active Substance: SITAGLIPTIN
     Dates: start: 20250616, end: 20250617
  12. ONDANSETRON [Concomitant]
     Active Substance: ONDANSETRON
     Dates: start: 20250528, end: 20250610
  13. DIPHENHYDRAMINE [Concomitant]
     Active Substance: DIPHENHYDRAMINE
     Dates: start: 20250619, end: 20250621
  14. TRIAMCINOLONE [Concomitant]
     Active Substance: TRIAMCINOLONE
     Dates: start: 20250621
  15. PIPERACILLIN SODIUM\TAZOBACTAM SODIUM [Concomitant]
     Active Substance: PIPERACILLIN SODIUM\TAZOBACTAM SODIUM
     Dates: start: 20250703, end: 20250704
  16. VANCOMYCIN [Concomitant]
     Active Substance: VANCOMYCIN
     Dates: start: 20250703, end: 20250706

REACTIONS (8)
  - Muscular weakness [None]
  - Sinus tachycardia [None]
  - Troponin increased [None]
  - Chills [None]
  - Chills [None]
  - Chromaturia [None]
  - Leukocytosis [None]
  - Urinary tract infection pseudomonal [None]

NARRATIVE: CASE EVENT DATE: 20250703
